FAERS Safety Report 10292091 (Version 1)
Quarter: 2014Q3

REPORT INFORMATION
  Report Type: Spontaneous
  Country: US (occurrence: US)
  Receive Date: 20140710
  Receipt Date: 20140710
  Transmission Date: 20150326
  Serious: No
  Sender: FDA-Public Use
  Company Number: US-PURDUE-USA-2013-0107583

PATIENT
  Sex: Female

DRUGS (3)
  1. BUTRANS [Suspect]
     Active Substance: BUPRENORPHINE
     Indication: PAIN
     Dosage: 20 MCG/HR, WEEKLY
     Route: 062
  2. BUTRANS [Suspect]
     Active Substance: BUPRENORPHINE
     Indication: RHEUMATOID ARTHRITIS
  3. BUTRANS [Suspect]
     Active Substance: BUPRENORPHINE
     Indication: OSTEOARTHRITIS

REACTIONS (10)
  - Application site irritation [Not Recovered/Not Resolved]
  - Application site reaction [Not Recovered/Not Resolved]
  - Application site erythema [Not Recovered/Not Resolved]
  - Application site pruritus [Not Recovered/Not Resolved]
  - Nausea [Unknown]
  - Application site erosion [Not Recovered/Not Resolved]
  - Product adhesion issue [Unknown]
  - Drug administered at inappropriate site [Unknown]
  - Headache [Unknown]
  - Pyrexia [Unknown]
